FAERS Safety Report 5394054-6 (Version None)
Quarter: 2007Q3

REPORT INFORMATION
  Report Type: 
  Country: None (occurrence: None)
  Receive Date: 20070723
  Receipt Date: 20070215
  Transmission Date: 20080115
  Serious: No
  Sender: FDA-Public Use
  Company Number: A0639725A

PATIENT
  Age: 80 Year
  Sex: Male

DRUGS (7)
  1. AVANDIA [Suspect]
     Dosage: 4MG PER DAY
     Route: 048
     Dates: start: 20060301, end: 20061101
  2. GLYBURIDE [Concomitant]
  3. AVAPRO [Concomitant]
  4. BENAZEPRIL HYDROCHLORIDE [Concomitant]
  5. HYDROCHLOROTHIAZIDE [Concomitant]
  6. FELODIPINE [Concomitant]
  7. DOXAZOSIN MESYLATE [Concomitant]

REACTIONS (1)
  - SWELLING [None]
